FAERS Safety Report 9230069 (Version 1)
Quarter: 2013Q2

REPORT INFORMATION
  Report Type: Spontaneous
  Country: US (occurrence: None)
  Receive Date: 20130412
  Receipt Date: 20130412
  Transmission Date: 20140414
  Serious: Yes (Hospitalization)
  Sender: FDA-Public Use
  Company Number: None

PATIENT
  Age: 27 Year
  Sex: Male
  Weight: 73.48 kg

DRUGS (1)
  1. ACETAMINOPHEN [Suspect]
     Indication: BACK PAIN
     Dosage: 3000 MG  Q2HR PRN  PO
     Route: 048
     Dates: start: 20130401, end: 20130408

REACTIONS (2)
  - Incorrect dose administered [None]
  - Inappropriate schedule of drug administration [None]
